FAERS Safety Report 17468420 (Version 2)
Quarter: 2020Q1

REPORT INFORMATION
  Report Type: Spontaneous
  Country: CA (occurrence: CA)
  Receive Date: 20200227
  Receipt Date: 20200228
  Transmission Date: 20200409
  Serious: Yes (Other)
  Sender: FDA-Public Use
  Company Number: CA-PFIZER INC-2020086371

PATIENT
  Age: 51 Year
  Sex: Female
  Weight: 56.24 kg

DRUGS (3)
  1. PROBIOTIC [BIFIDOBACTERIUM LACTIS] [Concomitant]
     Active Substance: BIFIDOBACTERIUM ANIMALIS LACTIS
     Dosage: PRN (AS NEEDED)
     Route: 048
  2. FISH OIL [COD-LIVER OIL] [Concomitant]
     Dosage: PRN (AS NEEDED)
     Route: 048
  3. ALTACE [Suspect]
     Active Substance: RAMIPRIL
     Indication: RENAL IMPAIRMENT
     Dosage: 2.5 MG, QD
     Route: 048
     Dates: start: 20200121, end: 20200128

REACTIONS (10)
  - Renal impairment [Not Recovered/Not Resolved]
  - Faeces discoloured [Recovering/Resolving]
  - Dyspepsia [Not Recovered/Not Resolved]
  - Hypotension [Unknown]
  - Cough [Recovered/Resolved]
  - Product use in unapproved indication [Unknown]
  - Condition aggravated [Not Recovered/Not Resolved]
  - Asthenia [Not Recovered/Not Resolved]
  - Abdominal pain upper [Recovering/Resolving]
  - Dizziness [Not Recovered/Not Resolved]

NARRATIVE: CASE EVENT DATE: 202001
